FAERS Safety Report 5001301-9 (Version None)
Quarter: 2006Q2

REPORT INFORMATION
  Report Type: 
  Country: None (occurrence: None)
  Receive Date: 20060512
  Receipt Date: 20060502
  Transmission Date: 20061013
  Serious: Yes (Hospitalization)
  Sender: FDA-Public Use
  Company Number: US-MERCK-0605USA00797

PATIENT
  Age: 60 Year
  Sex: Female
  Weight: 91 kg

DRUGS (12)
  1. VIOXX [Suspect]
     Indication: ARTHRITIS
     Route: 048
     Dates: start: 19991001, end: 20021101
  2. VIOXX [Suspect]
     Route: 048
     Dates: start: 19991001, end: 20021101
  3. PREVACID [Concomitant]
     Route: 065
  4. GLUCOPHAGE [Concomitant]
     Route: 065
  5. ZOLOFT [Concomitant]
     Route: 065
  6. PLAVIX [Concomitant]
     Route: 065
  7. GLYSET [Concomitant]
     Route: 065
  8. ESTROPIPATE [Concomitant]
     Route: 065
  9. LIPITOR [Concomitant]
     Route: 065
  10. METHOTREXATE [Concomitant]
     Route: 065
  11. VALIUM [Concomitant]
     Route: 065
  12. METOPROLOL [Concomitant]
     Route: 065

REACTIONS (2)
  - ANXIETY [None]
  - CEREBROVASCULAR ACCIDENT [None]
